FAERS Safety Report 23237638 (Version 2)
Quarter: 2023Q4

REPORT INFORMATION
  Report Type: Spontaneous
  Country: JP (occurrence: JP)
  Receive Date: 20231128
  Receipt Date: 20231213
  Transmission Date: 20240110
  Serious: Yes (Other)
  Sender: FDA-Public Use
  Company Number: JP-Eisai-202307088_LEN-RCC_P_1

PATIENT
  Age: 69 Year
  Sex: Male

DRUGS (10)
  1. LENVIMA [Suspect]
     Active Substance: LENVATINIB
     Indication: Renal cell carcinoma
     Dosage: 20 MG DAILY (WEEKENDS-OFF)
     Route: 048
     Dates: start: 20230413
  2. LENVIMA [Suspect]
     Active Substance: LENVATINIB
     Dosage: 14 MG/DAY (WEEKEND-OFF)
     Route: 048
     Dates: start: 2023, end: 2023
  3. LENVIMA [Suspect]
     Active Substance: LENVATINIB
     Dosage: DOSE AND FREQUENCY UNKNOWN
     Route: 048
     Dates: start: 202311
  4. KEYTRUDA [Concomitant]
     Active Substance: PEMBROLIZUMAB
     Indication: Renal cell carcinoma
     Route: 041
     Dates: start: 20230413, end: 202311
  5. CILNIDIPINE [Concomitant]
     Active Substance: CILNIDIPINE
     Indication: Hypertension
     Route: 065
     Dates: start: 202304
  6. CILNIDIPINE [Concomitant]
     Active Substance: CILNIDIPINE
     Route: 065
     Dates: start: 2023
  7. OLMESARTAN [Concomitant]
     Active Substance: OLMESARTAN
     Indication: Hypertension
     Route: 065
  8. OLMESARTAN [Concomitant]
     Active Substance: OLMESARTAN
     Route: 065
  9. HEPARINOID [Concomitant]
     Dosage: DOSE AND FREQUENCY UNKNOWN
     Route: 061
  10. BETNOVAL [Concomitant]
     Dosage: DOSE AND FREQUENCY UNKNOWN
     Route: 061

REACTIONS (4)
  - Hypertension [Recovering/Resolving]
  - Palmar-plantar erythrodysaesthesia syndrome [Recovered/Resolved]
  - Dysphonia [Recovering/Resolving]
  - Decreased appetite [Recovering/Resolving]

NARRATIVE: CASE EVENT DATE: 20230401
